FAERS Safety Report 19293241 (Version 1)
Quarter: 2021Q2

REPORT INFORMATION
  Report Type: Report from Study
  Country: US (occurrence: US)
  Receive Date: 20210524
  Receipt Date: 20210524
  Transmission Date: 20210717
  Serious: Yes (Hospitalization, Other)
  Sender: FDA-Public Use
  Company Number: US-AUROBINDO-AUR-APL-2021-020508

PATIENT
  Age: 59 Year
  Sex: Male

DRUGS (6)
  1. BENDAMUSTINE HYDROCHLORIDE. [Suspect]
     Active Substance: BENDAMUSTINE HYDROCHLORIDE
     Indication: AMYLOIDOSIS
     Dosage: 100 MG/M2, DAYS 1 AND 2 ( 1 MONTH)
     Route: 042
  2. BORTEZOMIB. [Suspect]
     Active Substance: BORTEZOMIB
     Indication: AMYLOIDOSIS
     Dosage: 1 UNK (1 CYCLE)
     Route: 065
  3. MELPHALAN. [Suspect]
     Active Substance: MELPHALAN
     Indication: AMYLOIDOSIS
     Dosage: 1 UNK, (1 CYCLE)
     Route: 065
  4. DEXAMETHASONE. [Suspect]
     Active Substance: DEXAMETHASONE
     Dosage: 1 UNK, DAYS 1, 8, 15 AND 22 (1 CYCLE)
     Route: 065
  5. PREDNISONE. [Suspect]
     Active Substance: PREDNISONE
     Indication: AMYLOIDOSIS
     Dosage: 1 UNK (1 CYCLE)
     Route: 065
  6. DEXAMETHASONE. [Suspect]
     Active Substance: DEXAMETHASONE
     Indication: AMYLOIDOSIS
     Dosage: 40 MILLIGRAM, DAYS 1, 8, 15 AND 22 (1 WEEK)
     Route: 048

REACTIONS (8)
  - Therapeutic response decreased [Unknown]
  - Blood sodium increased [Recovered/Resolved]
  - Product use in unapproved indication [Unknown]
  - Nephrogenic diabetes insipidus [Recovered/Resolved]
  - Urine osmolarity decreased [Recovered/Resolved]
  - Polyuria [Recovered/Resolved]
  - Polydipsia [Recovered/Resolved]
  - Fatigue [Recovered/Resolved]
